FAERS Safety Report 5726586-2 (Version None)
Quarter: 2008Q2

REPORT INFORMATION
  Report Type: 
  Country: None (occurrence: None)
  Receive Date: 20080502
  Receipt Date: 20080422
  Transmission Date: 20081010
  Serious: Yes (Other)
  Sender: FDA-Public Use
  Company Number: US-JNJFOC-20080206485

PATIENT
  Sex: Male
  Weight: 88.45 kg

DRUGS (16)
  1. FENTANYL TRANSDERMAL SYSTEM [Suspect]
     Dosage: 4X 100UG/HR PATCHES
     Route: 062
  2. FENTANYL TRANSDERMAL SYSTEM [Suspect]
     Dosage: 3X 100UG/HR PATCHES
     Route: 062
  3. FENTANYL TRANSDERMAL SYSTEM [Suspect]
     Dosage: 2X 100UG/HR PATCHES PLUS 1X 50UG/HR PATCH
     Route: 062
  4. FENTANYL TRANSDERMAL SYSTEM [Suspect]
     Dosage: 1X 100UG/HR PATCH PLUS 1X 75UG/HR PATCH
     Route: 062
  5. FENTANYL TRANSDERMAL SYSTEM [Suspect]
     Dosage: 1X 75UG/HR PATCH PLUS 1X 50UG/HR PATCH
     Route: 062
  6. FENTANYL TRANSDERMAL SYSTEM [Suspect]
     Route: 062
  7. FENTANYL TRANSDERMAL SYSTEM [Suspect]
     Route: 062
  8. FENTANYL TRANSDERMAL SYSTEM [Suspect]
     Indication: CANCER PAIN
     Route: 062
  9. ROXINAL [Concomitant]
     Indication: BREAKTHROUGH PAIN
     Route: 048
  10. COUMADIN [Concomitant]
     Indication: ANTICOAGULANT THERAPY
     Dosage: VARIED DOSES
     Route: 048
  11. NEURONTIN [Concomitant]
     Route: 048
  12. NEURONTIN [Concomitant]
     Indication: NEURALGIA
     Route: 048
  13. LASIX [Concomitant]
     Indication: OEDEMA
     Route: 048
  14. IBUPROFEN TABLETS [Concomitant]
     Indication: PAIN
     Route: 048
  15. PREDNISONE [Concomitant]
     Route: 048
  16. PREDNISONE [Concomitant]
     Indication: PAIN
     Route: 048

REACTIONS (4)
  - DEPRESSION [None]
  - HYPERHIDROSIS [None]
  - INTERNATIONAL NORMALISED RATIO INCREASED [None]
  - WRONG TECHNIQUE IN DRUG USAGE PROCESS [None]
